FAERS Safety Report 4538844-8 (Version None)
Quarter: 2004Q4

REPORT INFORMATION
  Report Type: 
  Country: None (occurrence: None)
  Receive Date: 20041222
  Receipt Date: 20041206
  Transmission Date: 20050328
  Serious: Yes (Other)
  Sender: FDA-Public Use
  Company Number: DSA_25484_2004

PATIENT
  Age: 33 Year
  Sex: Female
  Weight: 50.8029 kg

DRUGS (4)
  1. ATIVAN [Suspect]
     Indication: ANXIETY
     Dosage: DF PO
     Route: 048
  2. AMBIEN [Suspect]
     Indication: INSOMNIA
     Dosage: DF PO
     Route: 048
  3. PREVACID [Suspect]
     Indication: GASTROOESOPHAGEAL REFLUX DISEASE
     Dosage: DF PO
     Route: 048
     Dates: start: 20041001, end: 20041029
  4. ZOLOFT [Suspect]
     Indication: DEPRESSION
     Dosage: DF PO
     Route: 048

REACTIONS (1)
  - LEUKOPENIA [None]
